FAERS Safety Report 5833780-9 (Version None)
Quarter: 2008Q3

REPORT INFORMATION
  Report Type: 
  Country: None (occurrence: None)
  Receive Date: 20080804
  Receipt Date: 20080804
  Transmission Date: 20090109
  Serious: Yes (Hospitalization)
  Sender: FDA-Public Use
  Company Number: None

PATIENT
  Sex: Female
  Weight: 90.7194 kg

DRUGS (1)
  1. FACTIVE [Suspect]
     Indication: SINUSITIS
     Dosage: 1 TAB 1 PER DAY PO
     Route: 048
     Dates: start: 20080721, end: 20080725

REACTIONS (10)
  - ABDOMINAL PAIN UPPER [None]
  - DIARRHOEA [None]
  - DRUG INEFFECTIVE [None]
  - DYSPNOEA [None]
  - HYPERSENSITIVITY [None]
  - INSOMNIA [None]
  - NAUSEA [None]
  - NO THERAPEUTIC RESPONSE [None]
  - VAGINAL HAEMORRHAGE [None]
  - VOMITING [None]
